FAERS Safety Report 4667517-6 (Version None)
Quarter: 2005Q2

REPORT INFORMATION
  Report Type: 
  Country: None (occurrence: None)
  Receive Date: 20050519
  Receipt Date: 20050519
  Transmission Date: 20051028
  Serious: No
  Sender: FDA-Public Use
  Company Number: None

PATIENT
  Sex: Female
  Weight: 27.2158 kg

DRUGS (4)
  1. NIX [Suspect]
     Indication: LICE INFESTATION
     Dosage: ONCE EVERY 10 DAYS TOPICAL
     Route: 061
     Dates: start: 20020920, end: 20041001
  2. RID  1% PERMETHRIN [Suspect]
     Indication: LICE INFESTATION
     Dosage: ONCE EVERY 10 DAYS TOPICAL
     Route: 061
     Dates: start: 20020920, end: 20041001
  3. MAYONAISE [Concomitant]
  4. ROSEMARY FAIRY TALES HAIR CARE PRODUCTS [Concomitant]

REACTIONS (4)
  - ABDOMINAL PAIN UPPER [None]
  - DYSPNOEA [None]
  - FATIGUE [None]
  - HEADACHE [None]
